FAERS Safety Report 7789303-0 (Version None)
Quarter: 2011Q3

REPORT INFORMATION
  Report Type: 
  Country: None (occurrence: None)
  Receive Date: 20110930
  Receipt Date: 20110927
  Transmission Date: 20111222
  Serious: Yes (Hospitalization)
  Sender: FDA-Public Use
  Company Number: CA-GLAXOSMITHKLINE-A0904235A

PATIENT
  Sex: Female

DRUGS (1)
  1. TYKERB [Suspect]
     Indication: BREAST CANCER METASTATIC
     Dosage: 1250MG PER DAY
     Route: 048
     Dates: start: 20090913

REACTIONS (6)
  - BLOOD CALCIUM DECREASED [None]
  - WOUND INFECTION [None]
  - BLOOD POTASSIUM DECREASED [None]
  - BREAST DISCHARGE [None]
  - WOUND [None]
  - EAR INFECTION [None]
